FAERS Safety Report 7674033-6 (Version None)
Quarter: 2011Q3

REPORT INFORMATION
  Report Type: 
  Country: None (occurrence: None)
  Receive Date: 20110810
  Receipt Date: 20110804
  Transmission Date: 20111222
  Serious: Yes (Life-Threatening, Other)
  Sender: FDA-Public Use
  Company Number: JP-GENZYME-FABR-1002055

PATIENT
  Sex: Male
  Weight: 46 kg

DRUGS (12)
  1. PROPYLTHIOURACIL [Concomitant]
     Indication: PRODUCT USED FOR UNKNOWN INDICATION
     Dosage: 50 MG, TID
     Dates: start: 20030612, end: 20100402
  2. FABRAZYME [Suspect]
     Dosage: 49 MG, Q2W
     Route: 042
     Dates: start: 20040603, end: 20091218
  3. CALCIUM POLYSTYRENE SULFONATE [Concomitant]
     Indication: FABRY'S DISEASE
     Dosage: 25 G, TID
     Dates: start: 20080711, end: 20100402
  4. NIFEDIPINE [Concomitant]
     Indication: PRODUCT USED FOR UNKNOWN INDICATION
     Dosage: 20 MG, QD
     Dates: start: 20100219, end: 20100413
  5. FABRAZYME [Suspect]
     Dosage: 49 MG, Q4W
     Route: 042
     Dates: start: 20100108, end: 20100309
  6. AMLODIPINE BESYLATE [Concomitant]
     Indication: FABRY'S DISEASE
     Dosage: 10 MG, QD
     Dates: start: 20090828, end: 20100205
  7. CALCITRIOL [Concomitant]
     Indication: FABRY'S DISEASE
     Dosage: 0.25 MCG, QD
     Dates: start: 20080516, end: 20100415
  8. D-SORBITOL [Concomitant]
     Indication: CONSTIPATION PROPHYLAXIS
     Dosage: UNK
     Dates: start: 20100205, end: 20100219
  9. DIPYRIDAMOLE [Concomitant]
     Indication: FABRY'S DISEASE
     Dosage: 100 MG, TID
     Dates: start: 20030612, end: 20100402
  10. SPHERICAL ABSORBENT COAL [Concomitant]
     Indication: FABRY'S DISEASE
     Dosage: 2 G, TID
     Dates: start: 20070627, end: 20100402
  11. PRECIPITATED CALCIUM CARBONATE [Concomitant]
     Indication: FABRY'S DISEASE
     Dosage: 1000 MG, TID
     Dates: start: 20100402
  12. FABRAZYME [Suspect]
     Indication: FABRY'S DISEASE
     Dosage: 35 MG, Q4W
     Route: 042
     Dates: start: 20100402

REACTIONS (2)
  - PERICARDITIS URAEMIC [None]
  - RENAL FAILURE CHRONIC [None]
